FAERS Safety Report 6541646-4 (Version None)
Quarter: 2010Q1

REPORT INFORMATION
  Report Type: 
  Country: None (occurrence: None)
  Receive Date: 20100119
  Receipt Date: 20100107
  Transmission Date: 20100710
  Serious: Yes (Hospitalization, Other)
  Sender: FDA-Public Use
  Company Number: ES-CELGENEUS-144-21880-09102224

PATIENT
  Sex: Male
  Weight: 92 kg

DRUGS (9)
  1. REVLIMID [Suspect]
     Indication: MULTIPLE MYELOMA
     Route: 048
     Dates: start: 20090520, end: 20091025
  2. DEXAMETHASONE [Suspect]
     Indication: MULTIPLE MYELOMA
     Route: 048
     Dates: start: 20090520, end: 20091025
  3. ACETYLSALICYLIC ACID [Concomitant]
     Indication: THROMBOSIS PROPHYLAXIS
     Route: 048
     Dates: start: 20090520
  4. AMLODIPINE [Concomitant]
     Indication: HYPERTENSION
     Route: 048
  5. CIPROFLOXACIN [Concomitant]
     Route: 048
     Dates: start: 20091029, end: 20091106
  6. ENOXAPARIN SODIUM [Concomitant]
     Indication: THROMBOSIS PROPHYLAXIS
     Route: 058
     Dates: start: 20091028, end: 20091103
  7. ENOXAPARIN SODIUM [Concomitant]
     Indication: CARDIOMYOPATHY
     Route: 058
     Dates: start: 20091103, end: 20091108
  8. OMEPRAZOLE [Concomitant]
     Indication: PROPHYLAXIS
     Route: 048
     Dates: start: 20090629
  9. WARFARIN [Concomitant]
     Indication: CARDIOMYOPATHY
     Route: 048
     Dates: start: 20091107

REACTIONS (3)
  - ATRIAL FIBRILLATION [None]
  - PARKINSON'S DISEASE [None]
  - SYNCOPE [None]
